FAERS Safety Report 25491415 (Version 1)
Quarter: 2025Q2

REPORT INFORMATION
  Report Type: Spontaneous
  Country: US (occurrence: US)
  Receive Date: 20250629
  Receipt Date: 20250629
  Transmission Date: 20250716
  Serious: No
  Sender: ARDELYX
  Company Number: US-ARDELYX-2025ARDX002215

PATIENT
  Sex: Female

DRUGS (2)
  1. XPHOZAH [Suspect]
     Active Substance: TENAPANOR HYDROCHLORIDE
     Indication: Product used for unknown indication
     Route: 048
     Dates: start: 202503, end: 20250326
  2. SEVELAMER [Concomitant]
     Active Substance: SEVELAMER
     Indication: Product used for unknown indication
     Route: 065

REACTIONS (4)
  - Dermatitis contact [Unknown]
  - Off label use [Unknown]
  - Inappropriate schedule of product administration [Unknown]
  - Diarrhoea [Recovering/Resolving]
